FAERS Safety Report 24039183 (Version 1)
Quarter: 2024Q3

REPORT INFORMATION
  Report Type: Spontaneous
  Country: GB (occurrence: GB)
  Receive Date: 20240702
  Receipt Date: 20240702
  Transmission Date: 20241016
  Serious: Yes (Hospitalization, Other)
  Sender: TEVA
  Company Number: None

PATIENT
  Age: 40 Year
  Sex: Male
  Weight: 85 kg

DRUGS (4)
  1. DOXYCYCLINE [Suspect]
     Active Substance: DOXYCYCLINE\DOXYCYCLINE HYCLATE
     Indication: Adverse drug reaction
     Dosage: 100MG CAPSULE, 2 ON THE FIRST DAY AND THEN ONCE DAILY UNTIL COMPLETE
     Route: 065
     Dates: start: 20240530
  2. SIMVASTATIN [Concomitant]
     Active Substance: SIMVASTATIN
     Indication: Blood cholesterol increased
  3. RAMIPRIL [Concomitant]
     Active Substance: RAMIPRIL
     Indication: IgA nephropathy
  4. OMEPRAZOLE [Concomitant]
     Active Substance: OMEPRAZOLE
     Indication: Hiatus hernia

REACTIONS (2)
  - Hepatotoxicity [Recovering/Resolving]
  - Neuritis [Not Recovered/Not Resolved]

NARRATIVE: CASE EVENT DATE: 20240615
